FAERS Safety Report 19512339 (Version 3)
Quarter: 2022Q1

REPORT INFORMATION
  Report Type: Spontaneous
  Country: CA (occurrence: CA)
  Receive Date: 20210709
  Receipt Date: 20220314
  Transmission Date: 20220423
  Serious: Yes (Other)
  Sender: FDA-Public Use
  Company Number: None

PATIENT
  Age: 60 Year
  Sex: Male

DRUGS (17)
  1. METFORMIN HYDROCHLORIDE [Suspect]
     Active Substance: METFORMIN HYDROCHLORIDE
     Indication: Product used for unknown indication
     Route: 065
  2. RAMIPRIL [Suspect]
     Active Substance: RAMIPRIL
     Indication: Product used for unknown indication
     Route: 065
  3. ROSUVASTATIN CALCIUM [Suspect]
     Active Substance: ROSUVASTATIN CALCIUM
     Indication: Product used for unknown indication
     Route: 065
  4. AMIODARONE HYDROCHLORIDE [Suspect]
     Active Substance: AMIODARONE HYDROCHLORIDE
     Indication: Product used for unknown indication
     Route: 065
  5. CLOBETASOL [Suspect]
     Active Substance: CLOBETASOL
     Indication: Product used for unknown indication
     Route: 065
  6. CLOBETASOL [Suspect]
     Active Substance: CLOBETASOL
     Route: 065
  7. PANTOPRAZOLE MAGNESIUM [Concomitant]
     Active Substance: PANTOPRAZOLE MAGNESIUM
     Indication: Product used for unknown indication
  8. APIXABAN [Concomitant]
     Active Substance: APIXABAN
     Indication: Product used for unknown indication
  9. DEPO-MEDROL [Concomitant]
     Active Substance: METHYLPREDNISOLONE ACETATE
     Indication: Product used for unknown indication
     Route: 014
  10. DEPO-MEDROL [Concomitant]
     Active Substance: METHYLPREDNISOLONE ACETATE
     Route: 065
  11. JARDIANCE [Concomitant]
     Active Substance: EMPAGLIFLOZIN
     Indication: Product used for unknown indication
  12. METHOTREXATE [Concomitant]
     Active Substance: METHOTREXATE
     Indication: Product used for unknown indication
     Dosage: QW
     Route: 048
  13. METHOTREXATE [Concomitant]
     Active Substance: METHOTREXATE
     Dosage: 1 DF, QW
     Route: 048
     Dates: start: 20200609
  14. PNEUMOCOCCAL VACCINE CONJ [Concomitant]
     Indication: Product used for unknown indication
  15. SULFASALAZINE [Concomitant]
     Active Substance: SULFASALAZINE
     Indication: Product used for unknown indication
  16. TYLENOL [Concomitant]
     Active Substance: ACETAMINOPHEN
     Indication: Product used for unknown indication
  17. TYLENOL [Concomitant]
     Active Substance: ACETAMINOPHEN
     Indication: Product used for unknown indication

REACTIONS (17)
  - Psoriasis [Unknown]
  - Arthropathy [Unknown]
  - Enthesopathy [Unknown]
  - Joint effusion [Unknown]
  - Joint range of motion decreased [Unknown]
  - Joint swelling [Unknown]
  - Mobility decreased [Unknown]
  - Musculoskeletal stiffness [Unknown]
  - Pain [Unknown]
  - Psoriatic arthropathy [Unknown]
  - Spinal pain [Unknown]
  - Synovitis [Unknown]
  - Weight increased [Unknown]
  - Arthralgia [Unknown]
  - Paraesthesia [Unknown]
  - Abdominal discomfort [Unknown]
  - Pain in extremity [Unknown]
